FAERS Safety Report 8494257-8 (Version None)
Quarter: 2012Q3

REPORT INFORMATION
  Report Type: 
  Country: None (occurrence: None)
  Receive Date: 20120709
  Receipt Date: 20120705
  Transmission Date: 20120928
  Serious: Yes (Death)
  Sender: FDA-Public Use
  Company Number: PHHY2012MX058063

PATIENT
  Sex: Male

DRUGS (2)
  1. EXELON [Suspect]
     Dosage: 9.5 MG
     Route: 062
     Dates: start: 20111225
  2. EXELON [Suspect]
     Indication: DEMENTIA ALZHEIMER'S TYPE
     Dosage: 4.6MG/5CM2
     Route: 062
     Dates: start: 20111216

REACTIONS (3)
  - DIZZINESS [None]
  - HEADACHE [None]
  - CEREBRAL INFARCTION [None]
